FAERS Safety Report 20451362 (Version 1)
Quarter: 2022Q1

REPORT INFORMATION
  Report Type: Spontaneous
  Country: US (occurrence: US)
  Receive Date: 20220209
  Receipt Date: 20220209
  Transmission Date: 20220423
  Serious: No
  Sender: FDA-Public Use
  Company Number: US-LUNDBECK-DKLU3043830

PATIENT
  Age: 5 Year
  Sex: Female

DRUGS (4)
  1. SABRIL [Suspect]
     Active Substance: VIGABATRIN
     Indication: Infantile spasms
     Route: 048
     Dates: start: 201708
  2. SABRIL [Suspect]
     Active Substance: VIGABATRIN
     Indication: Status epilepticus
  3. EPIDIOLEX [Suspect]
     Active Substance: CANNABIDIOL
     Indication: Infantile spasms
     Route: 065
  4. EPIDIOLEX [Suspect]
     Active Substance: CANNABIDIOL
     Indication: Status epilepticus
     Route: 065

REACTIONS (1)
  - Hypersensitivity [Unknown]
